FAERS Safety Report 5132476-9 (Version None)
Quarter: 2006Q4

REPORT INFORMATION
  Report Type: 
  Country: None (occurrence: None)
  Receive Date: 20061017
  Receipt Date: 20050701
  Transmission Date: 20070319
  Serious: Yes (Life-Threatening, Hospitalization, Other)
  Sender: FDA-Public Use
  Company Number: 05-0074PO FU 1

PATIENT
  Sex: Female

DRUGS (7)
  1. MEFENAMIC ACID [Suspect]
     Indication: ILL-DEFINED DISORDER
     Dosage: 1500 MG, DAILY, ORAL
     Route: 048
     Dates: start: 20040801, end: 20050404
  2. ASPIRIN [Suspect]
     Indication: ILL-DEFINED DISORDER
  3. CONCOR [Concomitant]
  4. CO-DIOVAN [Concomitant]
  5. DIHYDROERGOTAMINE MESYLATE [Concomitant]
  6. SERESTA [Concomitant]
  7. LESCOL [Concomitant]

REACTIONS (18)
  - ACUTE PULMONARY OEDEMA [None]
  - ANOREXIA [None]
  - CARDIAC FAILURE [None]
  - CARDIAC FAILURE ACUTE [None]
  - CONSTIPATION [None]
  - DELIRIUM [None]
  - DIARRHOEA [None]
  - FALL [None]
  - FLUID OVERLOAD [None]
  - FLUID RETENTION [None]
  - HYPERTONIA [None]
  - PRODUCTIVE COUGH [None]
  - PYREXIA [None]
  - RENAL FAILURE ACUTE [None]
  - SEPSIS [None]
  - SYSTEMIC INFLAMMATORY RESPONSE SYNDROME [None]
  - TACHYARRHYTHMIA [None]
  - UPPER RESPIRATORY TRACT INFLAMMATION [None]
